FAERS Safety Report 23607804 (Version 1)
Quarter: 2024Q1

REPORT INFORMATION
  Report Type: Spontaneous
  Country: US (occurrence: US)
  Receive Date: 20240307
  Receipt Date: 20240307
  Transmission Date: 20240410
  Serious: No
  Sender: FDA-Public Use
  Company Number: US-GALDERMA-US2024002542

PATIENT

DRUGS (13)
  1. PROACTIV MD ADAPALENE ACNE TREATMENT [Suspect]
     Active Substance: ADAPALENE
     Indication: Acne
     Dosage: 1 DOSAGE FORM, QD
     Route: 061
     Dates: start: 202401, end: 20240205
  2. Proactiv MD Ultra Gentle Cleanser [Concomitant]
     Indication: Acne
     Dosage: 1 DOSAGE FORM, QD
     Route: 061
     Dates: start: 202401
  3. Proactiv MD Ultra Gentle Cleanser [Concomitant]
     Dosage: 1 DOSAGE FORM, BID
     Route: 061
  4. Proactiv MD Ultra Gentle Cleanser [Concomitant]
     Dosage: 1 DOSAGE FORM, QD
     Route: 061
     Dates: end: 20240205
  5. Proactiv MD Ultra Hydrating Moisturizer [Concomitant]
     Indication: Acne
     Dosage: 1 DOSAGE FORM, QD
     Route: 061
     Dates: start: 202401
  6. Proactiv MD Ultra Hydrating Moisturizer [Concomitant]
     Dosage: 1 DOSAGE FORM, BID
     Route: 061
  7. Proactiv MD Ultra Hydrating Moisturizer [Concomitant]
     Dosage: 1 DOSAGE FORM, QD
     Route: 061
     Dates: end: 20240205
  8. COSMETICS [Concomitant]
     Active Substance: COSMETICS
     Indication: Acne
     Dosage: 1 DOSAGE FORM, QD
     Route: 061
     Dates: start: 202401
  9. COSMETICS [Concomitant]
     Active Substance: COSMETICS
     Dosage: 1 DOSAGE FORM, BID
     Route: 061
  10. COSMETICS [Concomitant]
     Active Substance: COSMETICS
     Dosage: 1 DOSAGE FORM, QD
     Route: 061
     Dates: end: 20240205
  11. COSMETICS [Concomitant]
     Active Substance: COSMETICS
     Indication: Acne
     Dosage: 1 DOSAGE FORM, QD
     Route: 061
     Dates: start: 202401
  12. COSMETICS [Concomitant]
     Active Substance: COSMETICS
     Dosage: 1 DOSAGE FORM, BID
     Route: 061
  13. COSMETICS [Concomitant]
     Active Substance: COSMETICS
     Dosage: 1 DOSAGE FORM, QD
     Route: 061
     Dates: end: 20240205

REACTIONS (2)
  - Acne [Not Recovered/Not Resolved]
  - Erythema [Not Recovered/Not Resolved]

NARRATIVE: CASE EVENT DATE: 20240101
